FAERS Safety Report 13720657 (Version 1)
Quarter: 2017Q3

REPORT INFORMATION
  Report Type: Spontaneous
  Country: CH (occurrence: CH)
  Receive Date: 20170706
  Receipt Date: 20170706
  Transmission Date: 20171127
  Serious: Yes (Hospitalization)
  Sender: FDA-Public Use
  Company Number: CH-ROCHE-1959668

PATIENT
  Age: 67 Year
  Sex: Male

DRUGS (12)
  1. MABTHERA [Suspect]
     Active Substance: RITUXIMAB
     Indication: MANTLE CELL LYMPHOMA
     Dosage: CYCLE 1
     Route: 041
     Dates: start: 20170406
  2. RIBOMUSTIN [Concomitant]
     Active Substance: BENDAMUSTINE HYDROCHLORIDE
     Dosage: CYCLE 1
     Route: 041
     Dates: start: 20170406, end: 20170407
  3. NITRODERM [Concomitant]
     Active Substance: NITROGLYCERIN
     Route: 065
     Dates: start: 20170612
  4. MABTHERA [Suspect]
     Active Substance: RITUXIMAB
     Dosage: CYCLE 3
     Route: 041
     Dates: start: 20170608
  5. BILOL [Concomitant]
     Active Substance: BISOPROLOL
     Route: 065
     Dates: start: 20170612
  6. RIBOMUSTIN [Concomitant]
     Active Substance: BENDAMUSTINE HYDROCHLORIDE
     Dosage: CYCLE 2
     Route: 041
     Dates: start: 20170504, end: 20170505
  7. MABTHERA [Suspect]
     Active Substance: RITUXIMAB
     Dosage: CYCLE 2
     Route: 041
     Dates: start: 20170504, end: 20170518
  8. ASPIRIN. [Concomitant]
     Active Substance: ASPIRIN
     Route: 065
     Dates: start: 20170612
  9. AMLODIPIN [Concomitant]
     Active Substance: AMLODIPINE BESYLATE
     Route: 065
     Dates: start: 20170612
  10. ATORVASTATIN [Concomitant]
     Active Substance: ATORVASTATIN
     Route: 065
     Dates: start: 20170612
  11. ELTROXIN [Concomitant]
     Active Substance: LEVOTHYROXINE
     Route: 065
     Dates: start: 20170612
  12. RIBOMUSTIN [Concomitant]
     Active Substance: BENDAMUSTINE HYDROCHLORIDE
     Dosage: CYCLE 3
     Route: 041
     Dates: start: 20170608

REACTIONS (1)
  - Pneumonitis chemical [Recovering/Resolving]

NARRATIVE: CASE EVENT DATE: 20170612
